FAERS Safety Report 8311311-1 (Version None)
Quarter: 2012Q2

REPORT INFORMATION
  Report Type: 
  Country: None (occurrence: None)
  Receive Date: 20120425
  Receipt Date: 20120419
  Transmission Date: 20120825
  Serious: Yes (Hospitalization)
  Sender: FDA-Public Use
  Company Number: US-GLAXOSMITHKLINE-B0694221A

PATIENT
  Age: 70 Year
  Sex: Female
  Weight: 143.2 kg

DRUGS (7)
  1. AVANDIA [Suspect]
     Indication: DIABETES MELLITUS
     Dosage: 4MG TWICE PER DAY
     Route: 048
     Dates: start: 20010201, end: 20080613
  2. AVAPRO [Concomitant]
  3. LIPITOR [Concomitant]
  4. GLUCOTROL [Concomitant]
  5. LIPITOR [Concomitant]
  6. AVANDAMET [Suspect]
     Indication: DIABETES MELLITUS
     Dosage: 2TAB PER DAY
     Route: 048
     Dates: start: 20050207, end: 20050621
  7. TAMOXIFEN CITRATE [Concomitant]

REACTIONS (4)
  - MYOCARDIAL INFARCTION [None]
  - CARDIAC FAILURE CONGESTIVE [None]
  - CEREBROVASCULAR ACCIDENT [None]
  - TRANSIENT ISCHAEMIC ATTACK [None]
